FAERS Safety Report 6970258-3 (Version None)
Quarter: 2010Q3

REPORT INFORMATION
  Report Type: 
  Country: None (occurrence: None)
  Receive Date: 20100908
  Receipt Date: 20100825
  Transmission Date: 20110219
  Serious: Yes (Other)
  Sender: FDA-Public Use
  Company Number: PHHY2010JP57668

PATIENT
  Sex: Female

DRUGS (1)
  1. DIOVAN [Suspect]
     Route: 048

REACTIONS (5)
  - COUGH [None]
  - EYELID OEDEMA [None]
  - LIP SWELLING [None]
  - RASH [None]
  - SENSATION OF FOREIGN BODY [None]
